FAERS Safety Report 9094290 (Version 1)
Quarter: 2013Q1

REPORT INFORMATION
  Report Type: Report from Study
  Country: US (occurrence: US)
  Receive Date: 20130131
  Receipt Date: 20130131
  Transmission Date: 20140127
  Serious: No
  Sender: FDA-Public Use
  Company Number: US-ABBOTT-12P-163-0980461-00

PATIENT
  Sex: Female
  Weight: 59.02 kg

DRUGS (4)
  1. HUMIRA [Suspect]
     Indication: CROHN^S DISEASE
     Dates: start: 2007, end: 201208
  2. HUMIRA [Suspect]
     Route: 058
     Dates: start: 201208
  3. ASACOL [Concomitant]
     Indication: CROHN^S DISEASE
     Dates: end: 201208
  4. ASACOL [Concomitant]
     Dates: start: 201208

REACTIONS (12)
  - Anal fissure [Not Recovered/Not Resolved]
  - Faecal volume increased [Not Recovered/Not Resolved]
  - Kidney infection [Recovered/Resolved]
  - Abdominal pain [Not Recovered/Not Resolved]
  - Weight decreased [Not Recovered/Not Resolved]
  - Bleeding time [Recovered/Resolved]
  - Blood calcium [Recovered/Resolved]
  - Blood potassium [Recovered/Resolved]
  - Contusion [Recovered/Resolved]
  - Crohn^s disease [Recovered/Resolved]
  - Rectal haemorrhage [Not Recovered/Not Resolved]
  - Crohn^s disease [Recovered/Resolved]
